FAERS Safety Report 9258257 (Version 2)
Quarter: 2013Q2

REPORT INFORMATION
  Report Type: Spontaneous
  Country: DE (occurrence: DE)
  Receive Date: 20130426
  Receipt Date: 20130515
  Transmission Date: 20140414
  Serious: Yes (Other)
  Sender: FDA-Public Use
  Company Number: DE-AMGEN-DEUSP2013015598

PATIENT
  Age: 2 Year
  Sex: Female
  Weight: 9.4 kg

DRUGS (6)
  1. ENBREL [Suspect]
     Indication: JUVENILE IDIOPATHIC ARTHRITIS
     Dosage: 7.5 MG, WEEKLY
     Dates: start: 20120131, end: 20130201
  2. ENBREL [Suspect]
     Indication: RHEUMATOID ARTHRITIS
  3. MTX                                /00113802/ [Concomitant]
     Dosage: 10 MG, WEEKLY
  4. PREDNISOLON                        /00016201/ [Concomitant]
     Dosage: 2.5 MG/ DAY
  5. INDOMETACIN [Concomitant]
     Dosage: 7.5-5-5 MG/DAY
  6. FOLSAN [Concomitant]
     Dosage: 2.5 MG, 24 H AFTER MTX

REACTIONS (1)
  - Iridocyclitis [Recovered/Resolved]
